FAERS Safety Report 5757973-4 (Version None)
Quarter: 2008Q2

REPORT INFORMATION
  Report Type: 
  Country: None (occurrence: None)
  Receive Date: 20080530
  Receipt Date: 20080522
  Transmission Date: 20081010
  Serious: Yes (Hospitalization)
  Sender: FDA-Public Use
  Company Number: 2008SP009306

PATIENT
  Age: 61 Year
  Sex: Female
  Weight: 78.1 kg

DRUGS (8)
  1. TEMOZOLOMIDE [Suspect]
     Indication: COLON CANCER METASTATIC
     Dosage: 270 MG; QD; PO
     Route: 048
     Dates: start: 20071205
  2. TEMOZOLOMIDE [Suspect]
  3. ALBUTEROL [Concomitant]
  4. LOVENOX [Concomitant]
  5. METOPROLOL [Concomitant]
  6. NORCO [Concomitant]
  7. K-DUR [Concomitant]
  8. ZOFRAN [Concomitant]

REACTIONS (11)
  - ANOREXIA [None]
  - ARTHRALGIA [None]
  - DECREASED APPETITE [None]
  - DEHYDRATION [None]
  - DISEASE PROGRESSION [None]
  - HYPOTENSION [None]
  - NAUSEA [None]
  - PAIN [None]
  - PERIPHERAL SENSORY NEUROPATHY [None]
  - PYREXIA [None]
  - STAPHYLOCOCCAL BACTERAEMIA [None]
